FAERS Safety Report 25742438 (Version 1)
Quarter: 2025Q3

REPORT INFORMATION
  Report Type: Spontaneous
  Country: EU (occurrence: EU)
  Receive Date: 20250829
  Receipt Date: 20250829
  Transmission Date: 20251021
  Serious: Yes (Other)
  Sender: DR REDDYS
  Company Number: None

PATIENT
  Age: 70 Year
  Sex: Female

DRUGS (1)
  1. PREGABALIN [Suspect]
     Active Substance: PREGABALIN
     Indication: Multiple sclerosis
     Dosage: 325 MG/DAY

REACTIONS (4)
  - Haematoma [Recovered/Resolved]
  - Epistaxis [Recovered/Resolved]
  - Platelet aggregation abnormal [Unknown]
  - Product use in unapproved indication [Unknown]
